FAERS Safety Report 9977528 (Version 2)
Quarter: 2014Q1

REPORT INFORMATION
  Report Type: Report from Study
  Country: US (occurrence: US)
  Receive Date: 20140306
  Receipt Date: 20140306
  Transmission Date: 20141002
  Serious: No
  Sender: FDA-Public Use
  Company Number: US-ABBVIE-13P-163-1139332-00

PATIENT
  Age: 49 Year
  Sex: Female

DRUGS (12)
  1. HUMIRA [Suspect]
     Indication: RHEUMATOID ARTHRITIS
     Dates: start: 20130728
  2. LYRICA [Suspect]
     Indication: NEURALGIA
  3. LYRICA [Suspect]
     Dates: start: 201309
  4. LYRICA [Suspect]
     Dosage: 2-3 TIMES, 25 MG AT DAY TIME AND 50 MG AT BED TIME
     Dates: start: 201310
  5. COPAXONE [Concomitant]
     Indication: MULTIPLE SCLEROSIS
  6. WARFARIN [Concomitant]
     Indication: FACTOR V LEIDEN MUTATION
     Dosage: 8 TO 10 MG EVERY DAY
  7. PERCOCET [Concomitant]
     Indication: PAIN
  8. SAVELLA [Concomitant]
     Indication: FIBROMYALGIA
  9. CLONAZEPAM [Concomitant]
     Indication: RESTLESS LEGS SYNDROME
  10. TRIAMTERENE AND HYDROCHLOROTHIAZID [Concomitant]
     Indication: OEDEMA
     Dosage: 37.5/2.5MG DAILY
  11. AMRIX [Concomitant]
     Indication: MYALGIA
  12. TRIAZOLAM [Concomitant]
     Indication: INSOMNIA

REACTIONS (11)
  - Pain [Not Recovered/Not Resolved]
  - Influenza like illness [Not Recovered/Not Resolved]
  - Oropharyngeal pain [Recovering/Resolving]
  - Nausea [Not Recovered/Not Resolved]
  - Pyrexia [Not Recovered/Not Resolved]
  - Drug ineffective [Unknown]
  - Pain [Unknown]
  - Pain [Not Recovered/Not Resolved]
  - Neuralgia [Recovering/Resolving]
  - Fatigue [Unknown]
  - Drug dose omission [Recovered/Resolved]
